FAERS Safety Report 25042655 (Version 1)
Quarter: 2025Q1

REPORT INFORMATION
  Report Type: Spontaneous
  Country: FR (occurrence: FR)
  Receive Date: 20250305
  Receipt Date: 20250305
  Transmission Date: 20250409
  Serious: Yes (Hospitalization)
  Sender: MYLAN
  Company Number: None

PATIENT
  Age: 72 Year
  Sex: Female
  Weight: 73 kg

DRUGS (48)
  1. ETOPOSIDE [Suspect]
     Active Substance: ETOPOSIDE
     Indication: Lung carcinoma cell type unspecified stage IV
     Dates: start: 20240308, end: 20240510
  2. ETOPOSIDE [Suspect]
     Active Substance: ETOPOSIDE
     Dates: start: 20240308, end: 20240510
  3. ETOPOSIDE [Suspect]
     Active Substance: ETOPOSIDE
     Route: 042
     Dates: start: 20240308, end: 20240510
  4. ETOPOSIDE [Suspect]
     Active Substance: ETOPOSIDE
     Route: 042
     Dates: start: 20240308, end: 20240510
  5. ETOPOSIDE [Suspect]
     Active Substance: ETOPOSIDE
     Dates: start: 202406, end: 20240719
  6. ETOPOSIDE [Suspect]
     Active Substance: ETOPOSIDE
     Dates: start: 202406, end: 20240719
  7. ETOPOSIDE [Suspect]
     Active Substance: ETOPOSIDE
     Route: 042
     Dates: start: 202406, end: 20240719
  8. ETOPOSIDE [Suspect]
     Active Substance: ETOPOSIDE
     Route: 042
     Dates: start: 202406, end: 20240719
  9. CARBOPLATIN [Suspect]
     Active Substance: CARBOPLATIN
     Indication: Lung carcinoma cell type unspecified stage IV
     Dates: start: 20240308, end: 20240510
  10. CARBOPLATIN [Suspect]
     Active Substance: CARBOPLATIN
     Dates: start: 20240308, end: 20240510
  11. CARBOPLATIN [Suspect]
     Active Substance: CARBOPLATIN
     Route: 042
     Dates: start: 20240308, end: 20240510
  12. CARBOPLATIN [Suspect]
     Active Substance: CARBOPLATIN
     Route: 042
     Dates: start: 20240308, end: 20240510
  13. CARBOPLATIN [Suspect]
     Active Substance: CARBOPLATIN
     Dates: start: 202406, end: 20240719
  14. CARBOPLATIN [Suspect]
     Active Substance: CARBOPLATIN
     Dates: start: 202406, end: 20240719
  15. CARBOPLATIN [Suspect]
     Active Substance: CARBOPLATIN
     Route: 042
     Dates: start: 202406, end: 20240719
  16. CARBOPLATIN [Suspect]
     Active Substance: CARBOPLATIN
     Route: 042
     Dates: start: 202406, end: 20240719
  17. IMFINZI [Suspect]
     Active Substance: DURVALUMAB
     Indication: Lung carcinoma cell type unspecified stage IV
     Dates: start: 20240308, end: 20240510
  18. IMFINZI [Suspect]
     Active Substance: DURVALUMAB
     Dates: start: 20240308, end: 20240510
  19. IMFINZI [Suspect]
     Active Substance: DURVALUMAB
     Route: 042
     Dates: start: 20240308, end: 20240510
  20. IMFINZI [Suspect]
     Active Substance: DURVALUMAB
     Route: 042
     Dates: start: 20240308, end: 20240510
  21. IMFINZI [Suspect]
     Active Substance: DURVALUMAB
     Dates: start: 20240719, end: 20241008
  22. IMFINZI [Suspect]
     Active Substance: DURVALUMAB
     Dates: start: 20240719, end: 20241008
  23. IMFINZI [Suspect]
     Active Substance: DURVALUMAB
     Route: 042
     Dates: start: 20240719, end: 20241008
  24. IMFINZI [Suspect]
     Active Substance: DURVALUMAB
     Route: 042
     Dates: start: 20240719, end: 20241008
  25. FLUTICASONE FUROATE\VILANTEROL TRIFENATATE [Concomitant]
     Active Substance: FLUTICASONE FUROATE\VILANTEROL TRIFENATATE
     Indication: Lung carcinoma cell type unspecified stage IV
     Dosage: 1 DOSAGE FORM, QD (POWDER IN SINGLE-DOSE CONTAINER)
  26. FLUTICASONE FUROATE\VILANTEROL TRIFENATATE [Concomitant]
     Active Substance: FLUTICASONE FUROATE\VILANTEROL TRIFENATATE
     Dosage: 1 DOSAGE FORM, QD (POWDER IN SINGLE-DOSE CONTAINER)
     Route: 055
  27. FLUTICASONE FUROATE\VILANTEROL TRIFENATATE [Concomitant]
     Active Substance: FLUTICASONE FUROATE\VILANTEROL TRIFENATATE
     Dosage: 1 DOSAGE FORM, QD (POWDER IN SINGLE-DOSE CONTAINER)
     Route: 055
  28. FLUTICASONE FUROATE\VILANTEROL TRIFENATATE [Concomitant]
     Active Substance: FLUTICASONE FUROATE\VILANTEROL TRIFENATATE
     Dosage: 1 DOSAGE FORM, QD (POWDER IN SINGLE-DOSE CONTAINER)
  29. POTASSIUM CHLORIDE [Concomitant]
     Active Substance: POTASSIUM CHLORIDE
     Indication: Hypokalaemia
     Dosage: 3 DOSAGE FORM, Q8H
  30. POTASSIUM CHLORIDE [Concomitant]
     Active Substance: POTASSIUM CHLORIDE
     Dosage: 3 DOSAGE FORM, Q8H
     Route: 048
  31. POTASSIUM CHLORIDE [Concomitant]
     Active Substance: POTASSIUM CHLORIDE
     Dosage: 3 DOSAGE FORM, Q8H
     Route: 048
  32. POTASSIUM CHLORIDE [Concomitant]
     Active Substance: POTASSIUM CHLORIDE
     Dosage: 3 DOSAGE FORM, Q8H
  33. INNOHEP [Concomitant]
     Active Substance: TINZAPARIN SODIUM
     Indication: Deep vein thrombosis
     Dosage: 1400 INTERNATIONAL UNIT, QD
  34. INNOHEP [Concomitant]
     Active Substance: TINZAPARIN SODIUM
     Dosage: 1400 INTERNATIONAL UNIT, QD
     Route: 058
  35. INNOHEP [Concomitant]
     Active Substance: TINZAPARIN SODIUM
     Dosage: 1400 INTERNATIONAL UNIT, QD
     Route: 058
  36. INNOHEP [Concomitant]
     Active Substance: TINZAPARIN SODIUM
     Dosage: 1400 INTERNATIONAL UNIT, QD
  37. PERINDOPRIL [Concomitant]
     Active Substance: PERINDOPRIL
     Indication: Hypertension
     Dosage: 10 MILLIGRAM, QD
  38. PERINDOPRIL [Concomitant]
     Active Substance: PERINDOPRIL
     Dosage: 10 MILLIGRAM, QD
     Route: 048
  39. PERINDOPRIL [Concomitant]
     Active Substance: PERINDOPRIL
     Dosage: 10 MILLIGRAM, QD
     Route: 048
  40. PERINDOPRIL [Concomitant]
     Active Substance: PERINDOPRIL
     Dosage: 10 MILLIGRAM, QD
  41. INDAPAMIDE [Concomitant]
     Active Substance: INDAPAMIDE
     Indication: Hypertension
     Dosage: 12.5 MILLIGRAM, QD
  42. INDAPAMIDE [Concomitant]
     Active Substance: INDAPAMIDE
     Dosage: 12.5 MILLIGRAM, QD
     Route: 048
  43. INDAPAMIDE [Concomitant]
     Active Substance: INDAPAMIDE
     Dosage: 12.5 MILLIGRAM, QD
     Route: 048
  44. INDAPAMIDE [Concomitant]
     Active Substance: INDAPAMIDE
     Dosage: 12.5 MILLIGRAM, QD
  45. SKENAN [Concomitant]
     Active Substance: MORPHINE SULFATE
     Indication: Pain
     Dosage: 10 MILLIGRAM, BID
  46. SKENAN [Concomitant]
     Active Substance: MORPHINE SULFATE
     Dosage: 10 MILLIGRAM, BID
     Route: 048
  47. SKENAN [Concomitant]
     Active Substance: MORPHINE SULFATE
     Dosage: 10 MILLIGRAM, BID
     Route: 048
  48. SKENAN [Concomitant]
     Active Substance: MORPHINE SULFATE
     Dosage: 10 MILLIGRAM, BID

REACTIONS (1)
  - Tubulointerstitial nephritis [Recovering/Resolving]

NARRATIVE: CASE EVENT DATE: 20240416
